FAERS Safety Report 6654398-4 (Version None)
Quarter: 2010Q1

REPORT INFORMATION
  Report Type: 
  Country: None (occurrence: None)
  Receive Date: 20100326
  Receipt Date: 20100317
  Transmission Date: 20100710
  Serious: Yes (Congenital Anomaly)
  Sender: FDA-Public Use
  Company Number: GB-PFIZER INC-2010034144

PATIENT

DRUGS (3)
  1. GABAPENTIN [Suspect]
     Indication: EPILEPSY
     Dosage: 1200 MG, 2X/DAY
     Route: 064
  2. KEPPRA [Suspect]
     Indication: EPILEPSY
     Dosage: 2 G, 2X/DAY
     Route: 064
  3. LAMOTRIGINE [Suspect]
     Indication: EPILEPSY
     Dosage: 400 MG, 2X/DAY
     Route: 064

REACTIONS (3)
  - DRUG EXPOSURE DURING PREGNANCY [None]
  - MATERNAL DRUGS AFFECTING FOETUS [None]
  - TALIPES [None]
